FAERS Safety Report 9872799 (Version 2)
Quarter: 2014Q1

REPORT INFORMATION
  Report Type: Other
  Country: US (occurrence: US)
  Receive Date: 20140206
  Receipt Date: 20140206
  Transmission Date: 20141002
  Serious: No
  Sender: FDA-Public Use
  Company Number: US-ACORDA-ACO_100725_2013

PATIENT
  Sex: Female

DRUGS (1)
  1. AMPYRA [Suspect]
     Indication: GAIT DISTURBANCE
     Dosage: 10 MG, BID
     Route: 048
     Dates: start: 201007

REACTIONS (6)
  - Pollakiuria [Unknown]
  - Urinary tract infection [Unknown]
  - Back pain [Unknown]
  - Asthenia [Unknown]
  - Constipation [Unknown]
  - Multiple sclerosis relapse [Unknown]
